FAERS Safety Report 24112906 (Version 1)
Quarter: 2024Q3

REPORT INFORMATION
  Report Type: Spontaneous
  Country: CN (occurrence: CN)
  Receive Date: 20240719
  Receipt Date: 20240719
  Transmission Date: 20241017
  Serious: Yes (Other)
  Sender: MERCK
  Company Number: CN-009507513-2407CHN011635

PATIENT
  Age: 73 Year
  Sex: Male

DRUGS (1)
  1. KEYTRUDA [Suspect]
     Active Substance: PEMBROLIZUMAB
     Indication: Oesophageal carcinoma
     Dosage: UNK
     Dates: start: 20211110, end: 20231107

REACTIONS (3)
  - Myelosuppression [Unknown]
  - Asthenia [Unknown]
  - Product use in unapproved indication [Unknown]

NARRATIVE: CASE EVENT DATE: 20211110
